FAERS Safety Report 26069085 (Version 2)
Quarter: 2025Q4

REPORT INFORMATION
  Report Type: Report from Study
  Country: CA (occurrence: CA)
  Receive Date: 20251120
  Receipt Date: 20251201
  Transmission Date: 20260118
  Serious: Yes (Other)
  Sender: JOHNSON AND JOHNSON
  Company Number: CA-JNJFOC-20250530733

PATIENT
  Age: 40 Year
  Sex: Male

DRUGS (4)
  1. SIMPONI [Suspect]
     Active Substance: GOLIMUMAB
     Indication: Crohn^s disease
     Dosage: WEEK 0
     Route: 058
     Dates: start: 20140520
  2. SIMPONI [Suspect]
     Active Substance: GOLIMUMAB
     Dosage: THIRD SIMPONI INJECTION: 06-NOV-2025
     Route: 058
  3. SIMPONI [Suspect]
     Active Substance: GOLIMUMAB
     Route: 058
     Dates: start: 20250925
  4. ENTYVIO [Suspect]
     Active Substance: VEDOLIZUMAB
     Indication: Product used for unknown indication
     Dosage: LAST INFUSION: 20-OCT-2025

REACTIONS (4)
  - Diverticulitis [Recovering/Resolving]
  - Immunodeficiency [Unknown]
  - Bladder pain [Not Recovered/Not Resolved]
  - Off label use [Unknown]

NARRATIVE: CASE EVENT DATE: 20140520
